FAERS Safety Report 5247393-3 (Version None)
Quarter: 2007Q1

REPORT INFORMATION
  Report Type: 
  Country: None (occurrence: None)
  Receive Date: 20070220
  Receipt Date: 20070212
  Transmission Date: 20070707
  Serious: Yes (Death)
  Sender: FDA-Public Use
  Company Number: 234595K06USA

PATIENT
  Age: 48 Year
  Sex: Female

DRUGS (1)
  1. REBIF [Suspect]
     Indication: MULTIPLE SCLEROSIS
     Dosage: 44 MCG, 3 IN 1 WEEKS
     Dates: start: 20040701, end: 20050916

REACTIONS (4)
  - CHOKING [None]
  - INJURY ASPHYXIATION [None]
  - MUSCULAR WEAKNESS [None]
  - NASOPHARYNGEAL DISORDER [None]
